FAERS Safety Report 18360488 (Version 1)
Quarter: 2020Q4

REPORT INFORMATION
  Report Type: Spontaneous
  Country: US (occurrence: US)
  Receive Date: 20201002
  Receipt Date: 20201002
  Transmission Date: 20210114
  Serious: Yes (Other)
  Sender: FDA-Public Use
  Company Number: None

PATIENT
  Age: 4 Decade
  Sex: Male

DRUGS (3)
  1. LOPINAVIR-RITONAVIR [Suspect]
     Active Substance: LOPINAVIR\RITONAVIR
     Indication: COVID-19
     Dosage: ?          OTHER DOSE:400/100 MG;?
     Route: 048
     Dates: start: 2020
  2. CHLOROQUINE. [Suspect]
     Active Substance: CHLOROQUINE
     Indication: COVID-19
     Route: 048
     Dates: start: 2020
  3. CEFTRIAXONE. [Suspect]
     Active Substance: CEFTRIAXONE
     Indication: COVID-19
     Dates: start: 2020

REACTIONS (9)
  - Pneumonitis [None]
  - Acute pulmonary oedema [None]
  - Drug interaction [None]
  - Toxicity to various agents [None]
  - Opportunistic infection [None]
  - Renal impairment [None]
  - Interstitial lung disease [None]
  - Respiratory disorder [None]
  - Product use issue [None]
